FAERS Safety Report 4325096-7 (Version None)
Quarter: 2004Q1

REPORT INFORMATION
  Report Type: 
  Country: None (occurrence: None)
  Receive Date: 20040323
  Receipt Date: 20040203
  Transmission Date: 20041129
  Serious: No
  Sender: FDA-Public Use
  Company Number: USA040258379

PATIENT
  Age: 74 Year
  Sex: Male

DRUGS (5)
  1. CIALIS [Suspect]
     Indication: ERECTILE DYSFUNCTION
     Dosage: 20 MG/AS NEEDED
     Dates: start: 20040201
  2. NORVASC [Concomitant]
  3. VITAMIN E [Concomitant]
  4. ZINC [Concomitant]
  5. LOGOMED [Concomitant]

REACTIONS (4)
  - BACK PAIN [None]
  - BUTTOCK PAIN [None]
  - PAIN IN EXTREMITY [None]
  - SPONTANEOUS PENILE ERECTION [None]
